FAERS Safety Report 11719498 (Version 1)
Quarter: 2015Q4

REPORT INFORMATION
  Report Type: Spontaneous
  Country: US (occurrence: None)
  Receive Date: 20151109
  Receipt Date: 20151109
  Transmission Date: 20160304
  Serious: Yes (Life-Threatening, Other)
  Sender: FDA-Public Use
  Company Number: None

PATIENT
  Age: 80 Year
  Sex: Male
  Weight: 71.67 kg

DRUGS (5)
  1. BASIL. [Concomitant]
     Active Substance: BASIL
  2. LEMON. [Concomitant]
     Active Substance: LEMON
  3. METFORMIN [Suspect]
     Active Substance: METFORMIN HYDROCHLORIDE
     Indication: TYPE 2 DIABETES MELLITUS
     Route: 048
  4. CENTRUM SILVER [Concomitant]
     Active Substance: MINERALS\VITAMINS
  5. CINNAMON. [Concomitant]
     Active Substance: CINNAMON

REACTIONS (6)
  - Arthralgia [None]
  - Asthenia [None]
  - Lactic acidosis [None]
  - Muscle injury [None]
  - Chills [None]
  - Dyspnoea [None]
